FAERS Safety Report 7746428-3 (Version None)
Quarter: 2011Q3

REPORT INFORMATION
  Report Type: 
  Country: None (occurrence: None)
  Receive Date: 20110913
  Receipt Date: 20110902
  Transmission Date: 20111222
  Serious: Yes (Hospitalization, Other)
  Sender: FDA-Public Use
  Company Number: BR-BAYER-2011-083356

PATIENT
  Age: 63 Year
  Sex: Male
  Weight: 93 kg

DRUGS (6)
  1. NEXAVAR [Suspect]
     Indication: HEPATIC NEOPLASM MALIGNANT
     Dosage: 400 MG, BID
     Route: 048
     Dates: start: 20101214
  2. OMEPRAZOLE [Concomitant]
     Dosage: 20 MG, QD
     Route: 048
  3. DIPYRONE TAB [Concomitant]
     Dosage: 30 GTT, QID
     Route: 048
  4. PROPRANOLOL [Concomitant]
     Dosage: 40 MG, UNK
     Route: 048
  5. LAMIVUDINE [Concomitant]
     Dosage: 150 MG, QD
     Route: 048
  6. CAPTOPRIL [Concomitant]
     Dosage: 25 MG, BID
     Route: 048

REACTIONS (8)
  - MUCOSAL INFLAMMATION [None]
  - DIARRHOEA [None]
  - BLOOD BILIRUBIN INCREASED [None]
  - NAUSEA [None]
  - HYPERTENSION [None]
  - ASTHENIA [None]
  - THROMBOCYTOPENIA [None]
  - DIZZINESS [None]
